FAERS Safety Report 14069955 (Version 1)
Quarter: 2017Q4

REPORT INFORMATION
  Report Type: Spontaneous
  Country: US (occurrence: US)
  Receive Date: 20171010
  Receipt Date: 20171010
  Transmission Date: 20180321
  Serious: No
  Sender: FDA-Public Use
  Company Number: US-ALLERGAN-1731026US

PATIENT
  Age: 56 Year
  Sex: Male

DRUGS (2)
  1. NAMENDA XR [Suspect]
     Active Substance: MEMANTINE HYDROCHLORIDE
     Dosage: 28 MG, QD
     Route: 048
  2. NAMENDA XR [Suspect]
     Active Substance: MEMANTINE HYDROCHLORIDE
     Indication: AMNESIA
     Dosage: UNK
     Route: 048
     Dates: start: 201705

REACTIONS (4)
  - Weight decreased [Unknown]
  - Off label use [Unknown]
  - Feeling drunk [Unknown]
  - Dizziness [Unknown]
